FAERS Safety Report 7971692-5 (Version None)
Quarter: 2011Q4

REPORT INFORMATION
  Report Type: 
  Country: None (occurrence: None)
  Receive Date: 20111212
  Receipt Date: 20111205
  Transmission Date: 20120403
  Serious: Yes (Other)
  Sender: FDA-Public Use
  Company Number: BR-ABBOTT-11P-020-0705627-00

PATIENT
  Sex: Female
  Weight: 73 kg

DRUGS (4)
  1. AMITRIPTYLINE 12MG+KETOPROFEN 50MG+FAMOTIDINE 20MG+PREDNISONE 2.5MG [Concomitant]
     Indication: RHEUMATOID ARTHRITIS
     Route: 048
  2. CALCIUM [Concomitant]
     Indication: BONE DISORDER
     Route: 048
  3. HUMIRA [Suspect]
     Route: 058
     Dates: start: 20080101
  4. HUMIRA [Suspect]
     Indication: RHEUMATOID ARTHRITIS
     Dates: end: 20080101

REACTIONS (5)
  - WEIGHT INCREASED [None]
  - CARDIAC MURMUR [None]
  - WEIGHT DECREASED [None]
  - DECREASED APPETITE [None]
  - INFLUENZA [None]
